FAERS Safety Report 9250576 (Version 1)
Quarter: 2013Q1

REPORT INFORMATION
  Report Type: Spontaneous
  Country: US (occurrence: None)
  Receive Date: 20130305
  Receipt Date: 20130305
  Transmission Date: 20140127
  Serious: Yes (Hospitalization)
  Sender: FDA-Public Use
  Company Number: 163-21880-12063188

PATIENT
  Age: 86 Year
  Sex: Female

DRUGS (9)
  1. REVLIMID [Suspect]
     Indication: PLASMA CELL MYELOMA
     Dosage: 1 IN 1 D
     Route: 048
     Dates: start: 20100915
  2. ALLEGRA D(ALLEGRA-D - SLOW RELEASE) (UNKNOWN) [Concomitant]
  3. ASPIRIN LOW DOSE(ACETYLSALICYLIC ACID)(UNKNOWN) [Concomitant]
  4. LEXAPRO(ESCITALOPRAM OXALATE) (UNKNOWN) [Concomitant]
  5. NEXIUM(ESOMEPRAZOLE)(UNKNOWN)? [Concomitant]
  6. NIFEDIPINE(NIFEDIPINE)(UNKNOWN)? [Concomitant]
  7. TRAMADOL HCL(TRAMADOL HYDROCHLORIDE)(UNKNOWN) [Concomitant]
  8. VISTARIL(HYDROXYZINE EMBONATE)(UNKNOWN) [Concomitant]
  9. ZANTAC 75(RANITIDINE HYDROCHLORIDE) (UNKNOWN) [Concomitant]

REACTIONS (3)
  - Chest pain [None]
  - Dyspnoea [None]
  - Dehydration [None]
